FAERS Safety Report 8311672-3 (Version None)
Quarter: 2012Q2

REPORT INFORMATION
  Report Type: 
  Country: None (occurrence: None)
  Receive Date: 20120425
  Receipt Date: 20120418
  Transmission Date: 20120825
  Serious: Yes (Hospitalization)
  Sender: FDA-Public Use
  Company Number: US-BAYER-2011-075678

PATIENT
  Age: 29 Year
  Sex: Female

DRUGS (7)
  1. FLUTICASONE FUROATE [Concomitant]
     Dosage: 50 MCG SPRAY
     Route: 055
  2. FLOVENT [Concomitant]
     Dosage: 40 MCG INHALER
     Route: 055
  3. YASMIN [Suspect]
     Indication: DYSMENORRHOEA
     Dosage: UNK
     Dates: start: 20070101, end: 20100101
  4. YAZ [Suspect]
     Indication: CONTRACEPTION
     Dosage: UNK
     Dates: start: 20060101, end: 20080101
  5. DROSPIRENONE AND ETHINYL ESTRADIOL [Suspect]
  6. YASMIN [Suspect]
     Indication: CONTRACEPTION
     Dosage: UNK
     Dates: start: 20010101, end: 20060101
  7. PROAIR HFA [Concomitant]
     Dosage: 90 MCG INHALER
     Route: 055

REACTIONS (3)
  - DEEP VEIN THROMBOSIS [None]
  - INJURY [None]
  - PULMONARY EMBOLISM [None]
